FAERS Safety Report 8802592 (Version 2)
Quarter: 2015Q1

REPORT INFORMATION
  Report Type: Report from Study
  Country: US (occurrence: US)
  Receive Date: 20120921
  Receipt Date: 20150303
  Transmission Date: 20150721
  Serious: Yes (Death)
  Sender: FDA-Public Use
  Company Number: US-ROCHE-1102306

PATIENT
  Sex: Male
  Weight: 64 kg

DRUGS (5)
  1. AREDIA [Concomitant]
     Active Substance: PAMIDRONATE DISODIUM
     Route: 065
  2. GEMZAR [Concomitant]
     Active Substance: GEMCITABINE HYDROCHLORIDE
     Route: 065
  3. AVASTIN [Suspect]
     Active Substance: BEVACIZUMAB
     Indication: RENAL CANCER
     Route: 040
     Dates: start: 20040629
  4. AVASTIN [Suspect]
     Active Substance: BEVACIZUMAB
     Indication: HAEMATOLOGICAL MALIGNANCY
  5. AVASTIN [Suspect]
     Active Substance: BEVACIZUMAB
     Indication: URINARY TRACT NEOPLASM

REACTIONS (11)
  - Nephropathy toxic [Unknown]
  - Metastases to bone [Unknown]
  - Dizziness [Unknown]
  - Syncope [Unknown]
  - Pulmonary mass [Unknown]
  - Pain [Unknown]
  - Vertigo [Unknown]
  - Metastases to lung [Unknown]
  - Death [Fatal]
  - Pain in extremity [Unknown]
  - Arthralgia [Unknown]
